FAERS Safety Report 12834203 (Version 1)
Quarter: 2016Q4

REPORT INFORMATION
  Report Type: Spontaneous
  Country: US (occurrence: US)
  Receive Date: 20161010
  Receipt Date: 20161010
  Transmission Date: 20170207
  Serious: Yes (Life-Threatening, Hospitalization, Other)
  Sender: FDA-Public Use
  Company Number: US-HERITAGE PHARMACEUTICALS-2016HTG00246

PATIENT
  Age: 15 Year
  Sex: Female

DRUGS (1)
  1. BUPROPION HYDROCHLORIDE. [Suspect]
     Active Substance: BUPROPION HYDROCHLORIDE
     Dosage: 50-90 TABLETS, ONCE
     Route: 048

REACTIONS (11)
  - Toxicity to various agents [Recovered/Resolved]
  - Cardiomyopathy acute [Recovered/Resolved]
  - Acute kidney injury [Recovered/Resolved]
  - Overdose [Recovered/Resolved]
  - Status epilepticus [Recovered/Resolved]
  - Pneumonia aspiration [Unknown]
  - Hypoxia [Unknown]
  - Pulmonary haemorrhage [Unknown]
  - Pulseless electrical activity [Recovered/Resolved]
  - Pulmonary oedema [Recovered/Resolved]
  - Cardiogenic shock [Recovered/Resolved]
